FAERS Safety Report 17622243 (Version 1)
Quarter: 2020Q2

REPORT INFORMATION
  Report Type: Report from Study
  Country: IT (occurrence: IT)
  Receive Date: 20200403
  Receipt Date: 20200403
  Transmission Date: 20200713
  Serious: Yes (Other)
  Sender: FDA-Public Use
  Company Number: IT-PFIZER INC-2020135324

PATIENT
  Age: 88 Year
  Sex: Female

DRUGS (2)
  1. CARDIOASPIRIN [Suspect]
     Active Substance: ASPIRIN
     Indication: PROPHYLAXIS
     Dosage: 100 MG, 1X/DAY
     Route: 048
  2. HALCION [Suspect]
     Active Substance: TRIAZOLAM
     Indication: ANXIETY
     Dosage: 0.25 MG, TOTAL
     Route: 048
     Dates: start: 20190728, end: 20190728

REACTIONS (2)
  - Loss of consciousness [Recovering/Resolving]
  - Fall [Recovering/Resolving]

NARRATIVE: CASE EVENT DATE: 20190728
